FAERS Safety Report 13274172 (Version 1)
Quarter: 2017Q1

REPORT INFORMATION
  Report Type: Spontaneous
  Country: DE (occurrence: DE)
  Receive Date: 20170227
  Receipt Date: 20170227
  Transmission Date: 20170428
  Serious: Yes (Hospitalization, Other)
  Sender: FDA-Public Use
  Company Number: DE-ALLERGAN-1707091US

PATIENT
  Age: 1 Day
  Sex: Female
  Weight: 3.6 kg

DRUGS (2)
  1. METHYLDOPA. [Suspect]
     Active Substance: METHYLDOPA
     Indication: PRODUCT USED FOR UNKNOWN INDICATION
     Dosage: 250 MG, TID
     Route: 064
     Dates: start: 2016, end: 20160915
  2. NEBIVOLOL HCL - BP [Suspect]
     Active Substance: NEBIVOLOL
     Indication: PRODUCT USED FOR UNKNOWN INDICATION
     Dosage: 5 MG, QD
     Route: 064
     Dates: end: 20160915

REACTIONS (4)
  - Respiratory disorder neonatal [Recovered/Resolved]
  - Ammonia increased [Recovered/Resolved]
  - Foetal exposure during pregnancy [Unknown]
  - Infantile apnoea [Recovered/Resolved]

NARRATIVE: CASE EVENT DATE: 20160915
